FAERS Safety Report 7688142-9 (Version None)
Quarter: 2011Q3

REPORT INFORMATION
  Report Type: 
  Country: None (occurrence: None)
  Receive Date: 20110817
  Receipt Date: 20110804
  Transmission Date: 20111222
  Serious: Yes (Other)
  Sender: FDA-Public Use
  Company Number: US-ELI_LILLY_AND_COMPANY-US201108002405

PATIENT
  Age: 28 Year
  Sex: Male

DRUGS (1)
  1. STRATTERA [Suspect]
     Indication: ATTENTION DEFICIT/HYPERACTIVITY DISORDER
     Dosage: UNK
     Dates: start: 20110701, end: 20110803

REACTIONS (4)
  - ANGER [None]
  - SUICIDAL IDEATION [None]
  - DEPRESSED MOOD [None]
  - MOOD ALTERED [None]
